FAERS Safety Report 21883166 (Version 4)
Quarter: 2024Q3

REPORT INFORMATION
  Report Type: Report from Study
  Country: US (occurrence: US)
  Receive Date: 20230119
  Receipt Date: 20240819
  Transmission Date: 20241017
  Serious: Yes (Other)
  Sender: ABBVIE
  Company Number: US-ABBVIE-4274528

PATIENT
  Sex: Male

DRUGS (3)
  1. IMBRUVICA [Suspect]
     Active Substance: IBRUTINIB
     Indication: Chronic lymphocytic leukaemia
     Dosage: 140 MG THREE TIMES PER DAY
     Route: 048
     Dates: start: 20190130, end: 20210713
  2. IMBRUVICA [Suspect]
     Active Substance: IBRUTINIB
     Indication: Chronic lymphocytic leukaemia
     Dosage: 140 MG TWO TIMES PER DAY
     Route: 048
     Dates: start: 202107, end: 2023
  3. IMBRUVICA [Suspect]
     Active Substance: IBRUTINIB
     Indication: Chronic lymphocytic leukaemia
     Route: 048

REACTIONS (14)
  - Hip arthroplasty [Unknown]
  - Fall [Unknown]
  - Lung disorder [Unknown]
  - Ligament sprain [Unknown]
  - Post-acute COVID-19 syndrome [Unknown]
  - Tendon pain [Unknown]
  - Nervous system disorder [Unknown]
  - Bone pain [Unknown]
  - Cardiac disorder [Unknown]
  - Anxiety [Unknown]
  - COVID-19 [Recovered/Resolved]
  - Surgery [Unknown]
  - Bacterial infection [Unknown]
  - Myalgia [Unknown]

NARRATIVE: CASE EVENT DATE: 20210101
